FAERS Safety Report 7523571-5 (Version None)
Quarter: 2011Q2

REPORT INFORMATION
  Report Type: 
  Country: None (occurrence: None)
  Receive Date: 20110601
  Receipt Date: 20110601
  Transmission Date: 20111010
  Serious: No
  Sender: FDA-Public Use
  Company Number: None

PATIENT
  Age: 55 Year
  Sex: Male
  Weight: 65.7716 kg

DRUGS (1)
  1. AMBIEN [Suspect]

REACTIONS (11)
  - NIGHTMARE [None]
  - SELF INJURIOUS BEHAVIOUR [None]
  - HEAD INJURY [None]
  - MIDDLE INSOMNIA [None]
  - JOINT SPRAIN [None]
  - STRESS AT WORK [None]
  - LOSS OF EMPLOYMENT [None]
  - SOMNAMBULISM [None]
  - FALL [None]
  - FAMILY STRESS [None]
  - DIVORCED [None]
